FAERS Safety Report 11820406 (Version 1)
Quarter: 2015Q4

REPORT INFORMATION
  Report Type: Spontaneous
  Country: US (occurrence: US)
  Receive Date: 20151210
  Receipt Date: 20151210
  Transmission Date: 20160305
  Serious: Yes (Hospitalization)
  Sender: FDA-Public Use
  Company Number: US-SUN PHARMACEUTICAL INDUSTRIES LTD-2015US-107419

PATIENT
  Age: 71 Year
  Sex: Male

DRUGS (2)
  1. QUININE [Suspect]
     Active Substance: QUININE
     Indication: MALARIA
     Dosage: 7-DAY COURSE
     Route: 065
  2. DOXYCYCLINE. [Suspect]
     Active Substance: DOXYCYCLINE
     Indication: MALARIA
     Dosage: 7-DAY COURSE
     Route: 065

REACTIONS (5)
  - Hyperinsulinaemia [Unknown]
  - Deep vein thrombosis [Unknown]
  - Cerebrovascular accident [Recovering/Resolving]
  - Hypoglycaemia [Unknown]
  - Cerebral malaria [Recovering/Resolving]
